FAERS Safety Report 7426593-8 (Version None)
Quarter: 2011Q2

REPORT INFORMATION
  Report Type: 
  Country: None (occurrence: None)
  Receive Date: 20110420
  Receipt Date: 20110414
  Transmission Date: 20111010
  Serious: Yes (Hospitalization, Other)
  Sender: FDA-Public Use
  Company Number: DE-ABBOTT-11P-062-0697840-00

PATIENT
  Sex: Male
  Weight: 70 kg

DRUGS (10)
  1. CLOPIDOGREL [Concomitant]
     Indication: PRODUCT USED FOR UNKNOWN INDICATION
     Dosage: 75 MG
  2. SERTRALIN [Concomitant]
     Indication: PRODUCT USED FOR UNKNOWN INDICATION
  3. AMITRIPTYLINE HCL [Concomitant]
     Indication: PRODUCT USED FOR UNKNOWN INDICATION
  4. CARVEDILOL [Concomitant]
     Indication: PRODUCT USED FOR UNKNOWN INDICATION
  5. TAMSULOSIN [Concomitant]
     Indication: PRODUCT USED FOR UNKNOWN INDICATION
  6. STILNOX [Concomitant]
     Indication: PRODUCT USED FOR UNKNOWN INDICATION
  7. TRAMADOL HCL [Concomitant]
     Indication: PRODUCT USED FOR UNKNOWN INDICATION
  8. HUMIRA [Suspect]
     Indication: PSORIATIC ARTHROPATHY
     Route: 058
     Dates: start: 20061201
  9. PANTOPRAZOLE SODIUM [Concomitant]
     Indication: PRODUCT USED FOR UNKNOWN INDICATION
  10. PRAVASTATIN [Concomitant]
     Indication: PRODUCT USED FOR UNKNOWN INDICATION

REACTIONS (16)
  - PERIPHERAL ARTERIAL OCCLUSIVE DISEASE [None]
  - RETROPERITONEAL HAEMATOMA [None]
  - ILEUS PARALYTIC [None]
  - ARTERIAL HAEMORRHAGE [None]
  - HAEMOGLOBIN DECREASED [None]
  - RETROPERITONEAL HAEMORRHAGE [None]
  - ABDOMINAL PAIN [None]
  - PERIPHERAL ISCHAEMIA [None]
  - ARTERIAL OCCLUSIVE DISEASE [None]
  - PAIN [None]
  - VASCULAR OCCLUSION [None]
  - FEMORAL ARTERIAL STENOSIS [None]
  - NAUSEA [None]
  - VOMITING [None]
  - TREMOR [None]
  - INTERMITTENT CLAUDICATION [None]
